FAERS Safety Report 17179538 (Version 1)
Quarter: 2019Q4

REPORT INFORMATION
  Report Type: Spontaneous
  Country: ES (occurrence: ES)
  Receive Date: 20191219
  Receipt Date: 20191219
  Transmission Date: 20200122
  Serious: Yes (Other)
  Sender: FDA-Public Use
  Company Number: ES-TEVA-2019-ES-1153277

PATIENT
  Age: 43 Year
  Sex: Male

DRUGS (1)
  1. ENTECAVIR 0,5 MG COMPRIMIDO [Suspect]
     Active Substance: ENTECAVIR
     Indication: HEPATITIS B
     Dosage: 0.5 MG PER 24 HOURS
     Route: 065
     Dates: start: 20190907

REACTIONS (2)
  - Erectile dysfunction [Unknown]
  - Libido decreased [Unknown]

NARRATIVE: CASE EVENT DATE: 20191001
